FAERS Safety Report 4744282-5 (Version None)
Quarter: 2005Q3

REPORT INFORMATION
  Report Type: 
  Country: None (occurrence: None)
  Receive Date: 20050811
  Receipt Date: 20050811
  Transmission Date: 20060218
  Serious: No
  Sender: FDA-Public Use
  Company Number: None

PATIENT
  Age: 62 Year
  Sex: Female
  Weight: 79.3795 kg

DRUGS (3)
  1. CIPROFLOXACIN HCL [Suspect]
     Indication: PNEUMONIA
     Dosage: STANDARD POP      ORAL
     Route: 048
     Dates: start: 20050508, end: 20050513
  2. LEVAQUIN [Suspect]
     Indication: PNEUMONIA
     Dosage: 15 DAYS   ORAL
     Route: 048
     Dates: start: 20050518, end: 20050603
  3. PHYSICAL THERAPY [Concomitant]

REACTIONS (3)
  - PYREXIA [None]
  - SWELLING [None]
  - TENDON DISORDER [None]
